FAERS Safety Report 7825644-6 (Version None)
Quarter: 2011Q4

REPORT INFORMATION
  Report Type: 
  Country: None (occurrence: None)
  Receive Date: 20111017
  Receipt Date: 20090320
  Transmission Date: 20120403
  Serious: No
  Sender: FDA-Public Use
  Company Number: 200914807

PATIENT
  Age: 24 Month
  Sex: Female

DRUGS (3)
  1. CYTOGAM [Suspect]
     Indication: ANTIVIRAL PROPHYLAXIS
     Dosage: (INTRAVENOUS (NOT OTHERWISE SPECIFIED)),
     Route: 042
     Dates: start: 20090305
  2. BLOOD PRODUCTS (BLOOD AND RELATED PRODUCTS) [Concomitant]
  3. CYTOGAM [Suspect]

REACTIONS (1)
  - TOXOPLASMOSIS [None]
